FAERS Safety Report 9378659 (Version 1)
Quarter: 2013Q2

REPORT INFORMATION
  Report Type: Spontaneous
  Country: DE (occurrence: None)
  Receive Date: 20130626
  Receipt Date: 20130626
  Transmission Date: 20140414
  Serious: Yes (Other)
  Sender: FDA-Public Use
  Company Number: METF20130009

PATIENT
  Age: 17 Year
  Sex: Male

DRUGS (4)
  1. METHYLPHENIDATE [Suspect]
     Indication: WEIGHT INCREASED
  2. METHYLPHENIDATE [Suspect]
     Indication: DECREASED ACTIVITY
  3. METFORMIN [Suspect]
     Indication: WEIGHT INCREASED
     Route: 048
  4. METFORMIN [Suspect]
     Indication: DECREASED ACTIVITY
     Route: 048

REACTIONS (4)
  - Drug intolerance [None]
  - Grand mal convulsion [None]
  - Off label use [None]
  - Gastrointestinal disorder [None]
